FAERS Safety Report 11881064 (Version 2)
Quarter: 2016Q1

REPORT INFORMATION
  Report Type: Spontaneous
  Country: DE (occurrence: DE)
  Receive Date: 20151230
  Receipt Date: 20160129
  Transmission Date: 20160526
  Serious: Yes (Hospitalization, Other)
  Sender: FDA-Public Use
  Company Number: DE-CELGENE-DEU-2015124210

PATIENT
  Age: 66 Year
  Sex: Male
  Weight: 137 kg

DRUGS (1)
  1. OTEZLA [Suspect]
     Active Substance: APREMILAST
     Indication: PSORIASIS
     Dosage: 10-60MG
     Route: 048
     Dates: start: 20151102, end: 20151126

REACTIONS (2)
  - Pancreatitis [Recovered/Resolved]
  - Fat necrosis [Recovered/Resolved]

NARRATIVE: CASE EVENT DATE: 20151124
